FAERS Safety Report 5123953-5 (Version None)
Quarter: 2006Q3

REPORT INFORMATION
  Report Type: 
  Country: None (occurrence: None)
  Receive Date: 20060811
  Receipt Date: 20060623
  Transmission Date: 20061208
  Serious: No
  Sender: FDA-Public Use
  Company Number: S06-USA-02450-01

PATIENT
  Age: 86 Year
  Sex: Female

DRUGS (10)
  1. NAMENDA [Suspect]
     Indication: DEMENTIA ALZHEIMER'S TYPE
     Dosage: 5 MG QD PO
     Route: 048
     Dates: start: 20060619
  2. ARICEPT [Concomitant]
  3. SINEMET [Concomitant]
  4. TOPROL-XL [Concomitant]
  5. ASPIRIN [Concomitant]
  6. SENOKOT [Concomitant]
  7. MEGESTROL ACETATE [Concomitant]
  8. CITRACAL (CALCIUM CITRATE) [Concomitant]
  9. ASCORBIC ACID [Concomitant]
  10. MIRALAX [Concomitant]

REACTIONS (1)
  - SOMNOLENCE [None]
